FAERS Safety Report 6379465-4 (Version None)
Quarter: 2009Q3

REPORT INFORMATION
  Report Type: 
  Country: None (occurrence: None)
  Receive Date: 20090928
  Receipt Date: 20090914
  Transmission Date: 20100115
  Serious: Yes (Hospitalization)
  Sender: FDA-Public Use
  Company Number: B0593738A

PATIENT
  Age: 35 Year
  Sex: Male

DRUGS (4)
  1. EPIVIR [Suspect]
     Indication: ACQUIRED IMMUNODEFICIENCY SYNDROME
     Route: 048
     Dates: start: 20070101, end: 20070101
  2. VIRACEPT [Suspect]
     Indication: ACQUIRED IMMUNODEFICIENCY SYNDROME
     Route: 048
     Dates: start: 20070101, end: 20070101
  3. ZERIT [Suspect]
     Indication: ACQUIRED IMMUNODEFICIENCY SYNDROME
     Route: 048
     Dates: start: 20070101, end: 20070101
  4. DOXORUBICIN HCL [Suspect]
     Indication: ACQUIRED IMMUNODEFICIENCY SYNDROME
     Route: 042
     Dates: start: 20070101, end: 20070101

REACTIONS (3)
  - KAPOSI'S SARCOMA [None]
  - PLEURAL EFFUSION [None]
  - SKIN LESION [None]
